FAERS Safety Report 23717344 (Version 1)
Quarter: 2024Q2

REPORT INFORMATION
  Report Type: Spontaneous
  Country: CA (occurrence: CA)
  Receive Date: 20240408
  Receipt Date: 20240408
  Transmission Date: 20240716
  Serious: Yes (Other)
  Sender: FDA-Public Use
  Company Number: CA-STERISCIENCE B.V.-2024-ST-000391

PATIENT
  Age: 70 Year
  Sex: Female

DRUGS (8)
  1. MYCOPHENOLATE MOFETIL [Suspect]
     Active Substance: MYCOPHENOLATE MOFETIL
     Indication: Pemphigoid
     Dosage: UNK
     Route: 065
  2. CLOBETASOL [Suspect]
     Active Substance: CLOBETASOL
     Indication: Pemphigoid
     Dosage: UNK
     Route: 065
  3. PREDNISONE [Suspect]
     Active Substance: PREDNISONE
     Indication: Pemphigoid
     Dosage: UNK
     Route: 065
  4. PREDNISONE [Suspect]
     Active Substance: PREDNISONE
     Dosage: SLOWLY TAPERED OVER 4 WEEKS
     Route: 065
  5. PEMBROLIZUMAB [Concomitant]
     Active Substance: PEMBROLIZUMAB
     Indication: Papillary serous endometrial carcinoma
     Dosage: UNK
     Route: 065
  6. LENVATINIB [Concomitant]
     Active Substance: LENVATINIB
     Indication: Papillary serous endometrial carcinoma
     Dosage: UNK
     Route: 065
  7. DOXYCYCLINE [Concomitant]
     Active Substance: DOXYCYCLINE
     Indication: Pemphigoid
     Dosage: UNK
     Route: 065
  8. NICOTINAMIDE [Concomitant]
     Active Substance: NIACINAMIDE
     Indication: Pemphigoid
     Dosage: UNK
     Route: 065

REACTIONS (1)
  - Drug ineffective for unapproved indication [Unknown]
